FAERS Safety Report 5805803-4 (Version None)
Quarter: 2008Q3

REPORT INFORMATION
  Report Type: 
  Country: None (occurrence: None)
  Receive Date: 20080708
  Receipt Date: 20080708
  Transmission Date: 20090109
  Serious: Yes (Hospitalization)
  Sender: FDA-Public Use
  Company Number: None

PATIENT
  Age: 85 Year
  Sex: Male

DRUGS (1)
  1. SIMVASTATIN [Suspect]
     Dosage: 40 MG EVERY DAY PO
     Route: 048
     Dates: start: 20040707, end: 20080703

REACTIONS (5)
  - ASTHENIA [None]
  - BLOOD CREATININE INCREASED [None]
  - DEHYDRATION [None]
  - HYPERGLYCAEMIA [None]
  - RHABDOMYOLYSIS [None]
